FAERS Safety Report 4677548-8 (Version None)
Quarter: 2005Q2

REPORT INFORMATION
  Report Type: 
  Country: None (occurrence: None)
  Receive Date: 20050527
  Receipt Date: 20050527
  Transmission Date: 20051028
  Serious: Yes (Life-Threatening, Hospitalization)
  Sender: FDA-Public Use
  Company Number: None

PATIENT
  Age: 75 Year
  Sex: Female
  Weight: 66.7 kg

DRUGS (4)
  1. VISIPAQUE 320 [Suspect]
     Indication: DIAGNOSTIC PROCEDURE
     Dosage: 320 MG STAT INTRAVENOUS
     Route: 042
     Dates: start: 20050324, end: 20050324
  2. ZOCOR [Concomitant]
  3. DETROL LA [Concomitant]
  4. CARTIA XT [Concomitant]

REACTIONS (3)
  - ANAPHYLACTIC SHOCK [None]
  - CARDIO-RESPIRATORY ARREST [None]
  - CIRCULATORY COLLAPSE [None]
